FAERS Safety Report 15825770 (Version 1)
Quarter: 2018Q4

REPORT INFORMATION
  Report Type: Spontaneous
  Country: US (occurrence: US)
  Receive Date: 20181217
  Receipt Date: 20181217
  Transmission Date: 20190205
  Serious: Yes (Death, Hospitalization)
  Sender: FDA-Public Use
  Company Number: None

PATIENT
  Age: 17 Year
  Sex: Male
  Weight: 66.6 kg

DRUGS (5)
  1. VINCRISTINE [Suspect]
     Active Substance: VINCRISTINE
     Dates: end: 20180622
  2. DAUNORUBICIN [Suspect]
     Active Substance: DAUNORUBICIN
     Dates: end: 20180622
  3. PREDNISONE. [Suspect]
     Active Substance: PREDNISONE
     Dates: end: 20180628
  4. METHOTREXATE. [Suspect]
     Active Substance: METHOTREXATE
     Dates: end: 20180716
  5. CYTARABINE. [Suspect]
     Active Substance: CYTARABINE
     Dates: end: 20180530

REACTIONS (14)
  - Feeding intolerance [None]
  - Fungal infection [None]
  - Osmotic demyelination syndrome [None]
  - Septic shock [None]
  - Hypoxia [None]
  - Respiratory failure [None]
  - Toxicity to various agents [None]
  - Hyponatraemia [None]
  - Hepatic function abnormal [None]
  - Malnutrition [None]
  - Hepatic encephalopathy [None]
  - Pancytopenia [None]
  - Ascites [None]
  - Cardiac arrest [None]

NARRATIVE: CASE EVENT DATE: 20180723
